FAERS Safety Report 6444634-1 (Version None)
Quarter: 2009Q4

REPORT INFORMATION
  Report Type: 
  Country: None (occurrence: None)
  Receive Date: 20091116
  Receipt Date: 20091116
  Transmission Date: 20100525
  Serious: Yes (Life-Threatening, Hospitalization, Disabling)
  Sender: FDA-Public Use
  Company Number: None

PATIENT
  Sex: Male
  Weight: 98 kg

DRUGS (18)
  1. VOLTAREN [Suspect]
     Indication: ARTHRALGIA
     Dosage: 4 G ONCE (QD) DAILY APPLY TO KNEE (060) TOPICALLY   (2 DOSES)
     Route: 061
  2. ADVIL [Concomitant]
  3. FLUTICASONE [Concomitant]
  4. LANTUS [Concomitant]
  5. FIBERCON [Concomitant]
  6. LOTREL [Concomitant]
  7. GLUCOPHAGE [Concomitant]
  8. FISH OIL [Concomitant]
  9. ASPIRIN [Concomitant]
  10. LYRICA [Concomitant]
  11. NOVOLOG [Concomitant]
  12. ATACAND [Concomitant]
  13. PRILOSEC [Concomitant]
  14. ZOCOR [Concomitant]
  15. CALTRATE 600 + D [Concomitant]
  16. CENTRUM SILVER VITAMIN [Concomitant]
  17. ASCORBIC ACID [Concomitant]
  18. COLACE [Concomitant]

REACTIONS (2)
  - CEREBRAL HAEMORRHAGE [None]
  - HEMIPARESIS [None]
